FAERS Safety Report 22535278 (Version 1)
Quarter: 2023Q2

REPORT INFORMATION
  Report Type: Spontaneous
  Country: US (occurrence: None)
  Receive Date: 20230607
  Receipt Date: 20230607
  Transmission Date: 20230722
  Serious: No
  Sender: FDA-Public Use
  Company Number: None

PATIENT
  Sex: 0

DRUGS (1)
  1. AVELUMAB [Suspect]
     Active Substance: AVELUMAB

REACTIONS (5)
  - Chills [None]
  - Feeling cold [None]
  - Nausea [None]
  - Dyspepsia [None]
  - Infusion related reaction [None]
